FAERS Safety Report 17321418 (Version 2)
Quarter: 2020Q1

REPORT INFORMATION
  Report Type: Report from Study
  Country: None (occurrence: US)
  Receive Date: 20200126
  Receipt Date: 20200221
  Transmission Date: 20200409
  Serious: Yes (Other)
  Sender: FDA-Public Use
  Company Number: US-ABBVIE-20K-163-3247374-00

PATIENT
  Age: 74 Year
  Sex: Male

DRUGS (1)
  1. HUMIRA [Suspect]
     Active Substance: ADALIMUMAB
     Indication: RHEUMATOID ARTHRITIS
     Route: 058
     Dates: start: 20190926

REACTIONS (5)
  - Lymphoma [Unknown]
  - Malignant splenic neoplasm [Unknown]
  - Melanocytic naevus [Unknown]
  - Hepatic cancer [Unknown]
  - Axillary mass [Unknown]

NARRATIVE: CASE EVENT DATE: 20200102
